FAERS Safety Report 18507031 (Version 1)
Quarter: 2020Q4

REPORT INFORMATION
  Report Type: Spontaneous
  Country: US (occurrence: US)
  Receive Date: 20201115
  Receipt Date: 20201115
  Transmission Date: 20210114
  Serious: No
  Sender: FDA-Public Use
  Company Number: None

PATIENT
  Age: 40 Year
  Sex: Female
  Weight: 69.3 kg

DRUGS (7)
  1. DEXTROAMPHETAMINE. [Concomitant]
     Active Substance: DEXTROAMPHETAMINE
  2. FIBER [Concomitant]
     Active Substance: PSYLLIUM HUSK
  3. MELATONIN [Concomitant]
     Active Substance: MELATONIN
  4. OMEPRAZOLE. [Concomitant]
     Active Substance: OMEPRAZOLE
  5. DEXTROAMPHETAMINE. [Suspect]
     Active Substance: DEXTROAMPHETAMINE
     Indication: ATTENTION DEFICIT HYPERACTIVITY DISORDER
     Dosage: QUANTITY:1 TABLET(S);?
     Route: 048
  6. XANAX [Concomitant]
     Active Substance: ALPRAZOLAM
  7. CYMBALTA [Concomitant]
     Active Substance: DULOXETINE HYDROCHLORIDE

REACTIONS (4)
  - Product complaint [None]
  - Headache [None]
  - Confusional state [None]
  - Asthenia [None]
